FAERS Safety Report 4863614-0 (Version None)
Quarter: 2005Q4

REPORT INFORMATION
  Report Type: 
  Country: None (occurrence: None)
  Receive Date: 20051222
  Receipt Date: 20050524
  Transmission Date: 20060501
  Serious: No
  Sender: FDA-Public Use
  Company Number: US-GLAXOSMITHKLINE-A0559908A

PATIENT
  Age: 69 Year
  Sex: Female

DRUGS (6)
  1. FLONASE [Suspect]
     Dosage: 1SPR AT NIGHT
     Route: 045
  2. CELEBREX [Concomitant]
  3. FOSAMAX [Concomitant]
  4. SKELAXIN [Concomitant]
  5. ALBUTEROL [Concomitant]
  6. SALINE SOLUTION [Concomitant]

REACTIONS (1)
  - DRUG INEFFECTIVE [None]
